FAERS Safety Report 10011570 (Version 2)
Quarter: 2014Q1

REPORT INFORMATION
  Report Type: Spontaneous
  Country: US (occurrence: US)
  Receive Date: 20140314
  Receipt Date: 20140314
  Transmission Date: 20141002
  Serious: Yes (Hospitalization)
  Sender: FDA-Public Use
  Company Number: US-BEH-2013035000

PATIENT
  Sex: Female
  Weight: 56 kg

DRUGS (18)
  1. PRIVIGEN [Suspect]
     Indication: IMMUNODEFICIENCY COMMON VARIABLE
     Route: 042
     Dates: start: 20130218, end: 20130218
  2. PRIVIGEN [Suspect]
     Indication: SELECTIVE IGA IMMUNODEFICIENCY
     Route: 042
  3. EXPECTORANT [Concomitant]
  4. SENNA-S [Concomitant]
  5. METHOTREXATE [Concomitant]
  6. HYDROCHLOROQUINE [Concomitant]
  7. LISINOPRIL [Concomitant]
  8. DIPHENHYDRAMINE [Concomitant]
     Indication: PREMEDICATION
  9. EPINEPHRINE [Concomitant]
     Indication: PREMEDICATION
  10. SODIUM CHLORIDE [Concomitant]
     Indication: PREMEDICATION
  11. CELEBREX [Concomitant]
  12. POTASSIUM CHLORIDE [Concomitant]
  13. FOLIC ACID [Concomitant]
  14. ALPRAZOLAM [Concomitant]
  15. TRIAMTERENE-HCTZ [Concomitant]
  16. QUALAQUIN [Concomitant]
  17. MAGNESIUM GLYCINATE [Concomitant]
  18. EVOXAC [Concomitant]

REACTIONS (4)
  - Rectal prolapse [Unknown]
  - Fungal infection [Unknown]
  - Pyrexia [Unknown]
  - Influenza like illness [Unknown]
